FAERS Safety Report 8329665-9 (Version None)
Quarter: 2012Q2

REPORT INFORMATION
  Report Type: 
  Country: None (occurrence: None)
  Receive Date: 20120502
  Receipt Date: 20110610
  Transmission Date: 20120825
  Serious: Yes (Hospitalization)
  Sender: FDA-Public Use
  Company Number: US-GLAXOSMITHKLINE-A0934174A

PATIENT
  Age: 57 Year
  Sex: Male

DRUGS (1)
  1. AVANDIA [Suspect]
     Indication: DIABETES MELLITUS
     Route: 048
     Dates: start: 19990101, end: 20081231

REACTIONS (8)
  - CARDIAC FAILURE CONGESTIVE [None]
  - TIBIA FRACTURE [None]
  - DIALYSIS [None]
  - MYOCARDIAL INFARCTION [None]
  - BLINDNESS [None]
  - RENAL FAILURE [None]
  - ANKLE FRACTURE [None]
  - MULTIPLE FRACTURES [None]
